FAERS Safety Report 8167684-6 (Version None)
Quarter: 2012Q1

REPORT INFORMATION
  Report Type: 
  Country: None (occurrence: None)
  Receive Date: 20120227
  Receipt Date: 20120216
  Transmission Date: 20120608
  Serious: Yes (Other)
  Sender: FDA-Public Use
  Company Number: VE-BRISTOL-MYERS SQUIBB COMPANY-16404998

PATIENT
  Age: 64 Year
  Sex: Female

DRUGS (5)
  1. CARVEDILOL [Concomitant]
  2. COZAAR [Concomitant]
  3. LOSARTAN POTASSIUM [Concomitant]
  4. ORENCIA [Suspect]
     Dates: start: 20110830
  5. PROPAFENONE HCL [Concomitant]

REACTIONS (1)
  - HYPERTENSIVE CRISIS [None]
